FAERS Safety Report 15470122 (Version 9)
Quarter: 2020Q1

REPORT INFORMATION
  Report Type: Spontaneous
  Country: US (occurrence: US)
  Receive Date: 20181005
  Receipt Date: 20200314
  Transmission Date: 20200409
  Serious: Yes (Hospitalization)
  Sender: FDA-Public Use
  Company Number: US-ACTELION-A-US2018-179642

PATIENT
  Age: 32 Year
  Sex: Female
  Weight: 58.96 kg

DRUGS (5)
  1. VELETRI [Suspect]
     Active Substance: EPOPROSTENOL
     Indication: PULMONARY HYPERTENSION
     Dosage: 70 NG/KG, PER MIN
     Route: 042
  2. ADEMPAS [Concomitant]
     Active Substance: RIOCIGUAT
  3. LETAIRIS [Concomitant]
     Active Substance: AMBRISENTAN
  4. VELETRI [Suspect]
     Active Substance: EPOPROSTENOL
     Dosage: 70 NG/KG, PER MIN
     Route: 042
  5. ELIQUIS [Concomitant]
     Active Substance: APIXABAN

REACTIONS (9)
  - Vascular device infection [Unknown]
  - Catheter site pain [Unknown]
  - Dyspnoea exertional [Unknown]
  - Application site irritation [Unknown]
  - Pain in jaw [Not Recovered/Not Resolved]
  - Device occlusion [Unknown]
  - Headache [Not Recovered/Not Resolved]
  - Catheter site swelling [Unknown]
  - Central venous catheterisation [Unknown]

NARRATIVE: CASE EVENT DATE: 20190602
